FAERS Safety Report 7367797-2 (Version None)
Quarter: 2011Q1

REPORT INFORMATION
  Report Type: 
  Country: None (occurrence: None)
  Receive Date: 20110322
  Receipt Date: 20110221
  Transmission Date: 20110831
  Serious: No
  Sender: FDA-Public Use
  Company Number: US-BAYER-2011-017641

PATIENT
  Sex: Male
  Weight: 82 kg

DRUGS (3)
  1. ALEVE (CAPLET) [Suspect]
     Indication: ANALGESIC THERAPY
     Dosage: 1320 MG, UNK
     Route: 048
     Dates: start: 20110221
  2. RABIES [Concomitant]
  3. ANTIBIOTICS [Concomitant]
     Indication: BITE

REACTIONS (1)
  - NO ADVERSE EVENT [None]
